FAERS Safety Report 6078343-8 (Version None)
Quarter: 2009Q1

REPORT INFORMATION
  Report Type: 
  Country: None (occurrence: None)
  Receive Date: 20090213
  Receipt Date: 20090205
  Transmission Date: 20090719
  Serious: Yes (Hospitalization)
  Sender: FDA-Public Use
  Company Number: US-GENENTECH-276797

PATIENT
  Sex: Male
  Weight: 84.09 kg

DRUGS (1)
  1. RITUXIMAB [Suspect]
     Indication: NON-HODGKIN'S LYMPHOMA
     Dosage: 5 UNK, Q21D
     Route: 042
     Dates: start: 20081117

REACTIONS (1)
  - FEBRILE NEUTROPENIA [None]
